FAERS Safety Report 14270121 (Version 2)
Quarter: 2018Q3

REPORT INFORMATION
  Report Type: Report from Study
  Country: JP (occurrence: JP)
  Receive Date: 20171211
  Receipt Date: 20180920
  Transmission Date: 20181010
  Serious: Yes (Hospitalization, Other)
  Sender: FDA-Public Use
  Company Number: JP-OTSUKA-JP-2013-10268

PATIENT
  Age: 44 Year
  Sex: Male
  Weight: 83 kg

DRUGS (5)
  1. LIMAS [Suspect]
     Active Substance: LITHIUM CARBONATE
     Indication: BIPOLAR DISORDER
     Dosage: 200 MG, QD
     Route: 048
     Dates: start: 20120604, end: 20130121
  2. ARIPIPRAZOLE. [Suspect]
     Active Substance: ARIPIPRAZOLE
     Indication: BIPOLAR DISORDER
     Dosage: 24 MG, QD
     Route: 048
     Dates: start: 20130104, end: 20130118
  3. SENNOSIDE [Concomitant]
     Active Substance: SENNOSIDES
     Indication: PROPHYLAXIS
     Dosage: 2 DF, QD
     Route: 048
     Dates: start: 20130103, end: 20130117
  4. LEVOTOMIN [Suspect]
     Active Substance: LEVOMEPROMAZINE
     Indication: BIPOLAR DISORDER
     Dosage: 5 MG, QD
     Route: 048
     Dates: start: 20130104, end: 20130113
  5. RISPERIDONE. [Suspect]
     Active Substance: RISPERIDONE
     Indication: BIPOLAR DISORDER
     Dosage: 3 MG, QD
     Route: 048
     Dates: start: 20121230, end: 20130114

REACTIONS (1)
  - Neuroleptic malignant syndrome [Recovered/Resolved]

NARRATIVE: CASE EVENT DATE: 20130114
